FAERS Safety Report 9514612 (Version 1)
Quarter: 2013Q1

REPORT INFORMATION
  Report Type: Spontaneous
  Country: US (occurrence: None)
  Receive Date: 20130305
  Receipt Date: 20130305
  Transmission Date: 20140127
  Serious: Yes (Hospitalization)
  Sender: FDA-Public Use
  Company Number: 163-21880-12090524

PATIENT
  Age: 72 Year
  Sex: Male

DRUGS (7)
  1. REVLIMID [Suspect]
     Indication: MYELODYSPLASTIC SYNDROME
     Dosage: 10 MG, 1 IN 1 D, PO
     Route: 048
     Dates: start: 20120824, end: 20120901
  2. SIMVASTATIN [Concomitant]
  3. CENTRUM SILVER (CENTRUM SILIVER) (UNKNOWN) [Concomitant]
  4. ENALAPRIL MALEATE (ENALAPRIL MALEATE) (UNKNOWN) [Concomitant]
  5. LOPRESSOR XL (METOROLOL TARTRATE) (UNKNOWN) [Concomitant]
  6. LASIX (FUROSEMIDE) (UNKNOWN) [Concomitant]
  7. ASPIRIN (ACETYLSALICYLIC ACID) (UNKNOWN) (ACETYLSALICYLIC ACID) [Concomitant]

REACTIONS (2)
  - Cardiac failure congestive [None]
  - Rash papular [None]
